FAERS Safety Report 5503044-1 (Version None)
Quarter: 2007Q4

REPORT INFORMATION
  Report Type: 
  Country: None (occurrence: None)
  Receive Date: 20071029
  Receipt Date: 20071029
  Transmission Date: 20080405
  Serious: No
  Sender: FDA-Public Use
  Company Number: None

PATIENT
  Age: 42 Year
  Sex: Male
  Weight: 83.9154 kg

DRUGS (1)
  1. LIPITOR [Suspect]
     Indication: HYPERCHOLESTEROLAEMIA
     Dosage: 10 MG QHS PO
     Route: 048
     Dates: start: 20051001, end: 20070501

REACTIONS (5)
  - BURNING SENSATION [None]
  - HYPOAESTHESIA [None]
  - ILL-DEFINED DISORDER [None]
  - PARAESTHESIA [None]
  - SKIN DISORDER [None]
